FAERS Safety Report 4277927-7 (Version None)
Quarter: 2004Q1

REPORT INFORMATION
  Report Type: 
  Country: None (occurrence: None)
  Receive Date: 20040122
  Receipt Date: 20040122
  Transmission Date: 20041129
  Serious: Yes (Hospitalization)
  Sender: FDA-Public Use
  Company Number: None

PATIENT
  Age: 69 Year
  Sex: Female
  Weight: 63.5036 kg

DRUGS (4)
  1. TAXOL [Suspect]
     Indication: LARYNGEAL CANCER
     Dosage: 162 MG IV WKLY
     Route: 042
     Dates: start: 20031219, end: 20040116
  2. CARBOPLATIN [Suspect]
     Indication: LARYNGEAL CANCER
     Dosage: 220 MG IV WKLY
     Route: 042
     Dates: start: 20031219, end: 20040116
  3. MESNA [Suspect]
     Indication: LARYNGEAL CANCER
     Dosage: 1620 MG IV WKLY
     Route: 042
     Dates: start: 20031219, end: 20040116
  4. IFOSFAMIDE [Suspect]
     Indication: LARYNGEAL CANCER
     Dosage: 1620 MG IV WKLY
     Route: 042
     Dates: start: 20031219, end: 20040116

REACTIONS (3)
  - EPISTAXIS [None]
  - INTERNATIONAL NORMALISED RATIO INCREASED [None]
  - LABORATORY TEST ABNORMAL [None]
